FAERS Safety Report 6042180-0 (Version None)
Quarter: 2009Q1

REPORT INFORMATION
  Report Type: 
  Country: None (occurrence: None)
  Receive Date: 20090116
  Receipt Date: 20090107
  Transmission Date: 20090719
  Serious: Yes (Other)
  Sender: FDA-Public Use
  Company Number: PHBS2009NL00451

PATIENT
  Age: 60 Year
  Sex: Female

DRUGS (6)
  1. PAMIDRONATE DISODIUM [Suspect]
     Indication: BREAST CANCER METASTATIC
     Route: 042
  2. DEXAMETHASONE TAB [Concomitant]
  3. EXEMESTANE [Concomitant]
  4. TAMOXIFEN CITRATE [Concomitant]
  5. DOXORUBICIN HCL [Concomitant]
  6. PACLITAXEL [Concomitant]

REACTIONS (6)
  - HYPOAESTHESIA [None]
  - INFECTION [None]
  - OSTEOMYELITIS [None]
  - OSTEONECROSIS [None]
  - SEQUESTRECTOMY [None]
  - TOOTH EXTRACTION [None]
